FAERS Safety Report 11834277 (Version 2)
Quarter: 2017Q1

REPORT INFORMATION
  Report Type: Spontaneous
  Country: US (occurrence: US)
  Receive Date: 20151214
  Receipt Date: 20170106
  Transmission Date: 20170428
  Serious: Yes (Hospitalization)
  Sender: FDA-Public Use
  Company Number: US-JNJFOC-20151123455

PATIENT
  Age: 65 Year
  Sex: Male
  Weight: 137.89 kg

DRUGS (4)
  1. XARELTO [Suspect]
     Active Substance: RIVAROXABAN
     Indication: PROPHYLAXIS
     Dosage: VARYING DOSES OF 15 MG AND 20 MG
     Route: 048
     Dates: start: 201410, end: 20141206
  2. XARELTO [Suspect]
     Active Substance: RIVAROXABAN
     Indication: PROPHYLAXIS
     Route: 048
  3. XARELTO [Suspect]
     Active Substance: RIVAROXABAN
     Indication: DEEP VEIN THROMBOSIS
     Dosage: VARYING DOSES OF 15 MG AND 20 MG
     Route: 048
     Dates: start: 201410, end: 20141206
  4. XARELTO [Suspect]
     Active Substance: RIVAROXABAN
     Indication: DEEP VEIN THROMBOSIS
     Route: 048

REACTIONS (2)
  - Rectal haemorrhage [Unknown]
  - Radiation proctitis [Unknown]

NARRATIVE: CASE EVENT DATE: 20141205
